FAERS Safety Report 14681629 (Version 1)
Quarter: 2018Q1

REPORT INFORMATION
  Report Type: Spontaneous
  Country: US (occurrence: US)
  Receive Date: 20180326
  Receipt Date: 20180326
  Transmission Date: 20180509
  Serious: Yes (Hospitalization, Other)
  Sender: FDA-Public Use
  Company Number: US-PFIZER INC-2018121342

PATIENT
  Age: 79 Year
  Sex: Female
  Weight: 80.74 kg

DRUGS (2)
  1. PRISTIQ EXTENDED-RELEASE [Suspect]
     Active Substance: DESVENLAFAXINE SUCCINATE
     Indication: DEPRESSION
  2. PRISTIQ EXTENDED-RELEASE [Suspect]
     Active Substance: DESVENLAFAXINE SUCCINATE
     Indication: INSOMNIA
     Dosage: UNK, 1X/DAY
     Route: 048

REACTIONS (6)
  - Rib fracture [Unknown]
  - Hallucination [Unknown]
  - Multiple injuries [Unknown]
  - Fall [Unknown]
  - Concussion [Unknown]
  - Facial bones fracture [Unknown]
